FAERS Safety Report 12160678 (Version 1)
Quarter: 2016Q1

REPORT INFORMATION
  Report Type: Spontaneous
  Country: NZ (occurrence: NZ)
  Receive Date: 20160308
  Receipt Date: 20160308
  Transmission Date: 20160526
  Serious: Yes (Disabling)
  Sender: FDA-Public Use
  Company Number: NZ-009507513-1603NZL002028

PATIENT
  Age: 73 Year
  Sex: Male

DRUGS (1)
  1. ALENDRONATE SODIUM. [Suspect]
     Active Substance: ALENDRONATE SODIUM
     Indication: OSTEITIS DEFORMANS
     Dosage: 40 MG, QD
     Route: 048
     Dates: start: 20000202, end: 200007

REACTIONS (1)
  - Optic neuropathy [Not Recovered/Not Resolved]

NARRATIVE: CASE EVENT DATE: 20001016
